FAERS Safety Report 10058374 (Version 1)
Quarter: 2014Q2

REPORT INFORMATION
  Report Type: Spontaneous
  Country: US (occurrence: None)
  Receive Date: 20140403
  Receipt Date: 20140403
  Transmission Date: 20141212
  Serious: Yes (Hospitalization)
  Sender: FDA-Public Use
  Company Number: None

PATIENT
  Age: 76 Year
  Sex: Male
  Weight: 85.82 kg

DRUGS (35)
  1. 5-FLUOROURACIL (5-FU) [Suspect]
     Dates: end: 20120111
  2. BEVACIZUMAB (RHUMAB VEGF) (704865) [Suspect]
     Dates: end: 20120111
  3. IRINOTECAN (CPT-11, CAMPTOSAR) [Suspect]
     Dates: end: 20120111
  4. LEUCOVORIN CALCIUM [Suspect]
     Dates: end: 20120111
  5. OPIUM TINCTURE [Concomitant]
  6. DIPHENOXYLATE-ATROPINE (LOMOTIL) [Concomitant]
  7. DEXAMETHASONE [Concomitant]
  8. PROCHLORPERAZINE [Concomitant]
  9. LORAZEPAM (ATIVAN) [Concomitant]
  10. IRBESARTAN (AVAPRO) [Concomitant]
  11. ATORVASTATIN (LIPITOR) [Concomitant]
  12. ASPIRIN [Concomitant]
  13. AMLODIPINE [Concomitant]
  14. CARVEDILOL [Concomitant]
  15. PROMETHAZINE [Concomitant]
  16. MAGNESIUM HYDROXIDE [Concomitant]
  17. MULTIPLE VITAMINS [Concomitant]
  18. SIMETHICONE [Concomitant]
  19. NITROGLYCERIN [Concomitant]
  20. COENZYME Q10 [Concomitant]
  21. CHOLECALCIFEROL [Concomitant]
  22. PEGFILGRASTIM (NEULASTA) [Concomitant]
  23. ACETAMINOPHEN [Concomitant]
  24. ACETAMINOPHEN RECT (ACEPHEN) [Concomitant]
  25. LOPERAMIDE [Concomitant]
  26. DEXTROSE [Concomitant]
  27. PANTOPRAZOLE (PROTONIX) [Concomitant]
  28. ZOLPIDEM [Concomitant]
  29. CEPACOL [Concomitant]
  30. FLUCONAZOLE (DIFLUCAN) [Concomitant]
  31. NORMAL SALINE [Concomitant]
  32. ONDANSETRON (ZOFRAI) [Concomitant]
  33. PROMETHAZINE (PHENERGAN) [Concomitant]
  34. FLUCONAZOLE (DIFLUCAN) [Concomitant]
  35. NYSTATIN [Concomitant]

REACTIONS (7)
  - Oesophageal infection [None]
  - Diarrhoea [None]
  - Dehydration [None]
  - Fatigue [None]
  - Vomiting [None]
  - Nausea [None]
  - Decreased appetite [None]
